FAERS Safety Report 21136774 (Version 2)
Quarter: 2022Q3

REPORT INFORMATION
  Report Type: Spontaneous
  Country: US (occurrence: US)
  Receive Date: 20220727
  Receipt Date: 20220816
  Transmission Date: 20221027
  Serious: Yes (Other)
  Sender: FDA-Public Use
  Company Number: US-Cardinal Health 414-NPHS-AE-22-17

PATIENT
  Age: 80 Year
  Sex: Female
  Weight: 94.8 kg

DRUGS (2)
  1. UNSPECIFIED INGREDIENT [Concomitant]
     Active Substance: UNSPECIFIED INGREDIENT
  2. KIT FOR THE PREPARATION OF TECHNETIUM TC99M SESTAMIBI [Suspect]
     Active Substance: TECHNETIUM TC-99M SESTAMIBI
     Indication: Scan myocardial perfusion
     Dosage: REST DOSE
     Route: 042
     Dates: start: 20220711, end: 20220711

REACTIONS (23)
  - Anuria [Unknown]
  - Nausea [Unknown]
  - Vomiting [Unknown]
  - Tremor [Unknown]
  - Dizziness [Unknown]
  - Feeling cold [Unknown]
  - White blood cell count increased [Unknown]
  - Sepsis [Unknown]
  - Retroperitoneal oedema [Unknown]
  - Cough [Unknown]
  - Dyspnoea [Unknown]
  - Chest pain [Unknown]
  - Asthenia [Unknown]
  - Hyperhidrosis [Unknown]
  - Chest discomfort [Unknown]
  - Wheezing [Unknown]
  - Chills [Unknown]
  - Orthopnoea [Unknown]
  - Pallor [Unknown]
  - Abdominal pain [Unknown]
  - Respiratory acidosis [Unknown]
  - Confusional state [Unknown]
  - Septic shock [Unknown]

NARRATIVE: CASE EVENT DATE: 20220711
